FAERS Safety Report 17991033 (Version 2)
Quarter: 2020Q3

REPORT INFORMATION
  Report Type: Spontaneous
  Country: US (occurrence: US)
  Receive Date: 20200707
  Receipt Date: 20200713
  Transmission Date: 20201103
  Serious: No
  Sender: FDA-Public Use
  Company Number: US-GLAXOSMITHKLINE-US2020115011

PATIENT
  Age: 64 Year
  Sex: Female

DRUGS (1)
  1. SENSODYNE FRESH IMPACT [Suspect]
     Active Substance: POTASSIUM NITRATE\SODIUM FLUORIDE
     Indication: HYPERAESTHESIA TEETH
     Dosage: UNK
     Dates: start: 202005

REACTIONS (2)
  - Toothache [Unknown]
  - Drug ineffective [Unknown]
